FAERS Safety Report 6960711 (Version 2)
Quarter: 2014Q3

REPORT INFORMATION
  Report Type: Spontaneous
  Country: US (occurrence: None)
  Receive Date: 20090325
  Receipt Date: 20140926
  Transmission Date: 20150326
  Serious: Yes (Other)
  Sender: FDA-Public Use
  Company Number: 2009S1002462

PATIENT
  Age: 58 Year
  Sex: Female
  Weight: 92 kg

DRUGS (4)
  1. DULCOLAX (BISACODYL) [Suspect]
     Active Substance: BISACODYL
     Indication: COLONOSCOPY
  2. PHOSPHO-SODA [Suspect]
     Active Substance: SODIUM PHOSPHATE, DIBASIC\SODIUM PHOSPHATE, MONOBASIC
     Indication: COLONOSCOPY
     Route: 048
     Dates: start: 20060813, end: 20060813
  3. LISINOPRIL (LISINOPRIL) [Concomitant]
     Active Substance: LISINOPRIL
  4. BISOPROLOL/HYDROCHLOROTHIAZIDE (HYDROXYCHLOROTHIAZIDE, BISOPROLOL FUMARATE) [Concomitant]

REACTIONS (15)
  - Renal failure [None]
  - Hypernatraemia [None]
  - Hyperphosphataemia [None]
  - Nausea [None]
  - Hyperkalaemia [None]
  - Toxicity to various agents [None]
  - Hypercalcaemia [None]
  - Anaemia [None]
  - Nephrolithiasis [None]
  - Asthenia [None]
  - Hyperhidrosis [None]
  - Dehydration [None]
  - Abdominal distension [None]
  - Malaise [None]
  - Metabolic acidosis [None]

NARRATIVE: CASE EVENT DATE: 20061020
